FAERS Safety Report 12206758 (Version 1)
Quarter: 2016Q1

REPORT INFORMATION
  Report Type: Spontaneous
  Country: US (occurrence: US)
  Receive Date: 20160324
  Receipt Date: 20160324
  Transmission Date: 20160526
  Serious: No
  Sender: FDA-Public Use
  Company Number: US-BAYER-2016-056520

PATIENT
  Age: 5 Year
  Sex: Female
  Weight: 19.96 kg

DRUGS (2)
  1. MULTIVITAMINS [Concomitant]
     Active Substance: VITAMINS
     Indication: VITAMIN SUPPLEMENTATION
  2. CHILDREN CLARITIN ALLERGY [Suspect]
     Active Substance: LORATADINE
     Indication: SEASONAL ALLERGY
     Dosage: 1 DF, QD
     Route: 048

REACTIONS (1)
  - Accidental exposure to product by child [None]

NARRATIVE: CASE EVENT DATE: 20160322
